FAERS Safety Report 9437957 (Version 2)
Quarter: 2014Q3

REPORT INFORMATION
  Report Type: Spontaneous
  Country: US (occurrence: US)
  Receive Date: 20130802
  Receipt Date: 20140723
  Transmission Date: 20150326
  Serious: No
  Sender: FDA-Public Use
  Company Number: US-BRISTOL-MYERS SQUIBB COMPANY-18787416

PATIENT
  Age: 59 Year
  Sex: Male
  Weight: 86.17 kg

DRUGS (5)
  1. WARFARIN SODIUM. [Suspect]
     Active Substance: WARFARIN SODIUM
     Indication: PULMONARY EMBOLISM
     Dosage: 15 MG ON TUESDAY, THURSDAY?10MG ON OTHER DAYS
     Dates: start: 201004
  2. HYDROCODONE [Concomitant]
     Active Substance: HYDROCODONE
     Indication: BACK PAIN
  3. WARFARIN SODIUM. [Suspect]
     Active Substance: WARFARIN SODIUM
     Indication: COAGULOPATHY
     Dosage: 15 MG ON TUESDAY, THURSDAY?10MG ON OTHER DAYS
     Dates: start: 201004
  4. WARFARIN SODIUM. [Suspect]
     Active Substance: WARFARIN SODIUM
     Indication: DEEP VEIN THROMBOSIS
     Dosage: 15 MG ON TUESDAY, THURSDAY?10MG ON OTHER DAYS
     Dates: start: 201004
  5. CHANTIX [Suspect]
     Active Substance: VARENICLINE TARTRATE
     Indication: TOBACCO USER
     Dosage: TAB?RAN OUT OF DRUG IN:JAN 13
     Route: 048
     Dates: start: 2011

REACTIONS (3)
  - Depression [Not Recovered/Not Resolved]
  - International normalised ratio decreased [Unknown]
  - Anxiety [Not Recovered/Not Resolved]

NARRATIVE: CASE EVENT DATE: 201301
